FAERS Safety Report 9120535 (Version 2)
Quarter: 2013Q2

REPORT INFORMATION
  Report Type: Spontaneous
  Country: BA (occurrence: BA)
  Receive Date: 20130226
  Receipt Date: 20130424
  Transmission Date: 20140414
  Serious: Yes (Death, Life-Threatening, Other)
  Sender: FDA-Public Use
  Company Number: BA-ROCHE-1194242

PATIENT
  Age: 47 Year
  Sex: Male

DRUGS (6)
  1. MABTHERA [Suspect]
     Indication: B-CELL LYMPHOMA
     Route: 042
     Dates: start: 20121214, end: 20130125
  2. CYCLOPHOSPHAMIDE [Concomitant]
     Indication: B-CELL LYMPHOMA
     Route: 042
     Dates: start: 20121123, end: 20130126
  3. ONCOVIN [Concomitant]
     Indication: B-CELL LYMPHOMA
     Route: 042
     Dates: start: 20121123, end: 20130126
  4. ONCOVIN [Concomitant]
     Route: 042
  5. PREDNISOLONE [Concomitant]
     Indication: B-CELL LYMPHOMA
     Route: 042
     Dates: start: 20121123, end: 20130126
  6. PREDNISOLONE [Concomitant]
     Route: 042

REACTIONS (8)
  - Respiratory arrest [Recovered/Resolved with Sequelae]
  - Hydrocephalus [Recovered/Resolved with Sequelae]
  - Brain oedema [Recovered/Resolved with Sequelae]
  - Diplopia [Recovered/Resolved]
  - Headache [Unknown]
  - Vomiting [Unknown]
  - Convulsion [Unknown]
  - Death [Fatal]
